FAERS Safety Report 24275748 (Version 2)
Quarter: 2024Q3

REPORT INFORMATION
  Report Type: Report from Study
  Country: US (occurrence: US)
  Receive Date: 20240903
  Receipt Date: 20240917
  Transmission Date: 20241017
  Serious: Yes (Other)
  Sender: INSMED
  Company Number: US-INSMED, INC.-2024-00601-US

PATIENT
  Sex: Male

DRUGS (1)
  1. ARIKAYCE [Suspect]
     Active Substance: AMIKACIN
     Indication: Mycobacterial infection
     Dosage: 590 MILLIGRAM, QD
     Route: 055
     Dates: start: 20240209

REACTIONS (6)
  - Pulmonary congestion [Not Recovered/Not Resolved]
  - Increased viscosity of bronchial secretion [Unknown]
  - Respiratory tract congestion [Not Recovered/Not Resolved]
  - Rales [Not Recovered/Not Resolved]
  - Productive cough [Unknown]
  - Pruritus [Not Recovered/Not Resolved]

NARRATIVE: CASE EVENT DATE: 20240101
